FAERS Safety Report 7777765-4 (Version None)
Quarter: 2011Q3

REPORT INFORMATION
  Report Type: 
  Country: None (occurrence: None)
  Receive Date: 20110926
  Receipt Date: 20110916
  Transmission Date: 20111222
  Serious: Yes (Hospitalization)
  Sender: FDA-Public Use
  Company Number: US-BIOGENIDEC-2011BI033558

PATIENT
  Age: 52 Year
  Sex: Male

DRUGS (2)
  1. AVONEX [Suspect]
     Route: 030
     Dates: start: 20100825
  2. AVONEX [Suspect]
     Indication: MULTIPLE SCLEROSIS
     Route: 030
     Dates: start: 20070101

REACTIONS (4)
  - PAIN [None]
  - SENSORY DISTURBANCE [None]
  - STAPHYLOCOCCAL INFECTION [None]
  - PROCTALGIA [None]
